FAERS Safety Report 14662921 (Version 2)
Quarter: 2018Q4

REPORT INFORMATION
  Report Type: Spontaneous
  Country: TH (occurrence: TH)
  Receive Date: 20180321
  Receipt Date: 20181011
  Transmission Date: 20190204
  Serious: Yes (Life-Threatening)
  Sender: FDA-Public Use
  Company Number: TH-NOVITIUM PHARMA LLC-2018-TH-000014

PATIENT
  Age: 41 Year
  Sex: Male

DRUGS (4)
  1. ZIDOVUDINE. [Concomitant]
     Active Substance: ZIDOVUDINE
     Indication: PRODUCT USED FOR UNKNOWN INDICATION
     Route: 065
  2. LAMIVUDINE. [Concomitant]
     Active Substance: LAMIVUDINE
     Indication: PRODUCT USED FOR UNKNOWN INDICATION
     Route: 065
  3. DAPSONE. [Suspect]
     Active Substance: DAPSONE
     Indication: PROPHYLAXIS AGAINST HIV INFECTION
     Dosage: 100 MG PER DAY
     Route: 065
  4. EFAVIRENZ. [Concomitant]
     Active Substance: EFAVIRENZ
     Indication: PRODUCT USED FOR UNKNOWN INDICATION
     Route: 065

REACTIONS (7)
  - Stevens-Johnson syndrome [Unknown]
  - Rash maculo-papular [None]
  - Pyrexia [None]
  - Skin exfoliation [None]
  - Purpura [None]
  - Product use in unapproved indication [None]
  - Hepatitis [Unknown]
